FAERS Safety Report 6305228-1 (Version None)
Quarter: 2009Q3

REPORT INFORMATION
  Report Type: 
  Country: None (occurrence: None)
  Receive Date: 20090810
  Receipt Date: 20090810
  Transmission Date: 20100115
  Serious: Yes (Other)
  Sender: FDA-Public Use
  Company Number: None

PATIENT
  Age: 32 Year
  Sex: Male
  Weight: 97.5234 kg

DRUGS (1)
  1. LAMITROGENE [Suspect]
     Indication: BIPOLAR I DISORDER
     Dosage: 400M QD PO
     Route: 048

REACTIONS (4)
  - ERYTHEMA [None]
  - PRODUCT SUBSTITUTION ISSUE [None]
  - RASH [None]
  - SKIN DISCOLOURATION [None]
